FAERS Safety Report 5451295-7 (Version None)
Quarter: 2007Q3

REPORT INFORMATION
  Report Type: 
  Country: None (occurrence: None)
  Receive Date: 20070913
  Receipt Date: 20070906
  Transmission Date: 20080115
  Serious: Yes (Hospitalization)
  Sender: FDA-Public Use
  Company Number: B0484645A

PATIENT
  Age: 76 Year
  Sex: Male

DRUGS (4)
  1. SENSODYNE-F [Suspect]
     Indication: DENTAL CLEANING
     Dates: start: 20061101, end: 20070601
  2. BENDROFLUMETHIAZIDE [Concomitant]
     Dosage: 2.5MG PER DAY
     Route: 065
  3. ATENOLOL [Concomitant]
     Dosage: 25MG PER DAY
     Route: 065
  4. PARACETAMOL [Concomitant]
     Route: 065

REACTIONS (10)
  - BALANCE DISORDER [None]
  - COUGH [None]
  - DYSPNOEA [None]
  - LETHARGY [None]
  - LOWER RESPIRATORY TRACT INFECTION [None]
  - PAIN [None]
  - PHARYNGITIS [None]
  - POOR QUALITY DRUG ADMINISTERED [None]
  - TONGUE COATED [None]
  - WEIGHT DECREASED [None]
